FAERS Safety Report 26214110 (Version 1)
Quarter: 2025Q4

REPORT INFORMATION
  Report Type: Spontaneous
  Country: EU (occurrence: EU)
  Receive Date: 20251230
  Receipt Date: 20251230
  Transmission Date: 20260117
  Serious: Yes (Life-Threatening)
  Sender: FRESENIUS KABI
  Company Number: None

PATIENT
  Age: 68 Year
  Sex: Male
  Weight: 83 kg

DRUGS (6)
  1. ACETAMINOPHEN [Suspect]
     Active Substance: ACETAMINOPHEN
     Indication: Procedural pain
     Route: 042
     Dates: start: 20240926, end: 20240926
  2. BUPIVACAINUM HYDROCHLORICUM WZF 0.5% 5 mg/ml solution for injection [Concomitant]
     Indication: Product used for unknown indication
     Route: 042
     Dates: start: 20240926, end: 20240926
  3. NEOSTIGMINE [Concomitant]
     Active Substance: NEOSTIGMINE
     Indication: Product used for unknown indication
     Route: 042
     Dates: start: 20240926, end: 20240926
  4. LIGNOCAINUM HYDROCHLORICUM WZF 2% [Concomitant]
     Indication: Product used for unknown indication
     Route: 042
     Dates: start: 20240926, end: 20240926
  5. FENTANYL [Concomitant]
     Active Substance: FENTANYL
     Indication: Product used for unknown indication
     Dates: start: 20240926, end: 20240926
  6. MIDAZOLAM HYDROCHLORIDE [Concomitant]
     Active Substance: MIDAZOLAM HYDROCHLORIDE
     Indication: Product used for unknown indication
     Route: 042
     Dates: start: 20240926, end: 20240926

REACTIONS (6)
  - Blood pressure decreased [Recovered/Resolved]
  - Oxygen saturation decreased [Recovered/Resolved]
  - Asthenia [Recovered/Resolved]
  - Dyspnoea [Recovered/Resolved]
  - Chest discomfort [Recovered/Resolved]
  - Urticaria [Recovered/Resolved]

NARRATIVE: CASE EVENT DATE: 20240926
